FAERS Safety Report 6216369-1 (Version None)
Quarter: 2009Q2

REPORT INFORMATION
  Report Type: 
  Country: None (occurrence: None)
  Receive Date: 20090605
  Receipt Date: 20090527
  Transmission Date: 20091009
  Serious: Yes (Death, Hospitalization)
  Sender: FDA-Public Use
  Company Number: US-BIOGENIDEC-2007BI008614

PATIENT
  Age: 65 Year
  Sex: Female

DRUGS (2)
  1. TYSABRI [Suspect]
     Indication: MULTIPLE SCLEROSIS
     Route: 042
     Dates: start: 20050224, end: 20050224
  2. TYSABRI [Suspect]
     Route: 042
     Dates: start: 20070315, end: 20070417

REACTIONS (2)
  - DEATH [None]
  - HYPERSENSITIVITY [None]
